FAERS Safety Report 9874517 (Version 2)
Quarter: 2014Q1

REPORT INFORMATION
  Report Type: Spontaneous
  Country: US (occurrence: US)
  Receive Date: 20140206
  Receipt Date: 20140225
  Transmission Date: 20141002
  Serious: Yes (Death, Other)
  Sender: FDA-Public Use
  Company Number: US-BIOGENIDEC-2014BI009166

PATIENT
  Age: 41 Year
  Sex: Female

DRUGS (1)
  1. TECFIDERA [Suspect]
     Indication: MULTIPLE SCLEROSIS
     Route: 048
     Dates: start: 201308, end: 20140125

REACTIONS (2)
  - Neoplasm malignant [Unknown]
  - Death [Fatal]
